FAERS Safety Report 19163999 (Version 1)
Quarter: 2021Q2

REPORT INFORMATION
  Report Type: Spontaneous
  Country: GB (occurrence: GB)
  Receive Date: 20210421
  Receipt Date: 20210421
  Transmission Date: 20210717
  Serious: Yes (Hospitalization)
  Sender: FDA-Public Use
  Company Number: GB-PFIZER INC-2021391946

PATIENT
  Age: 54 Year
  Sex: Male
  Weight: 87.2 kg

DRUGS (3)
  1. METOCLOPRAMIDE HYDROCHLORIDE. [Concomitant]
     Active Substance: METOCLOPRAMIDE HYDROCHLORIDE
  2. OXALIPLATIN. [Suspect]
     Active Substance: OXALIPLATIN
     Indication: RECTAL CANCER
     Dosage: 270 MG
     Route: 042
     Dates: start: 20210331, end: 20210331
  3. CAPECITABINE. [Concomitant]
     Active Substance: CAPECITABINE

REACTIONS (7)
  - Paraesthesia oral [Recovered/Resolved]
  - Hypertension [Unknown]
  - Bronchospasm [Unknown]
  - Tachycardia [Unknown]
  - Pharyngeal paraesthesia [Unknown]
  - Breath sounds abnormal [Unknown]
  - Dyspnoea [Unknown]

NARRATIVE: CASE EVENT DATE: 20210331
